FAERS Safety Report 14714935 (Version 1)
Quarter: 2018Q2

REPORT INFORMATION
  Report Type: Spontaneous
  Country: KR (occurrence: KR)
  Receive Date: 20180404
  Receipt Date: 20180404
  Transmission Date: 20180711
  Serious: Yes (Other)
  Sender: FDA-Public Use
  Company Number: KR-TEVA-802853ISR

PATIENT
  Age: 76 Year
  Sex: Female

DRUGS (1)
  1. RISEDRONIC ACID [Suspect]
     Active Substance: RISEDRONIC ACID
     Dosage: MORE THAN 3 YEARS

REACTIONS (2)
  - Osteonecrosis of jaw [Not Recovered/Not Resolved]
  - Bacterial infection [Not Recovered/Not Resolved]
